FAERS Safety Report 5036583-0 (Version None)
Quarter: 2006Q2

REPORT INFORMATION
  Report Type: 
  Country: None (occurrence: None)
  Receive Date: 20060623
  Receipt Date: 20060621
  Transmission Date: 20061013
  Serious: Yes (Disabling)
  Sender: FDA-Public Use
  Company Number: CIP06001425

PATIENT
  Sex: Female

DRUGS (1)
  1. OPTINATE                         (RISEDRONATE SODIUM) [Suspect]
     Indication: OSTEOPOROSIS
     Dosage: 35 MG ONCE WEEKLY ORAL
     Route: 048
     Dates: start: 20050620, end: 20060308

REACTIONS (1)
  - RETINAL VASCULAR THROMBOSIS [None]
